FAERS Safety Report 5714115-9 (Version None)
Quarter: 2008Q2

REPORT INFORMATION
  Report Type: 
  Country: None (occurrence: None)
  Receive Date: 20080422
  Receipt Date: 20080422
  Transmission Date: 20081010
  Serious: Yes (Life-Threatening, Hospitalization)
  Sender: FDA-Public Use
  Company Number: None

PATIENT
  Sex: Female
  Weight: 78.0187 kg

DRUGS (2)
  1. SUTENT [Suspect]
     Indication: RENAL CELL CARCINOMA
     Dosage: 50 MG DAILY PO
     Route: 048
  2. GEMFIBROZIL [Concomitant]

REACTIONS (5)
  - FATIGUE [None]
  - JAUNDICE [None]
  - RASH [None]
  - SINUS CONGESTION [None]
  - SINUS HEADACHE [None]
